FAERS Safety Report 7300970-8 (Version None)
Quarter: 2011Q1

REPORT INFORMATION
  Report Type: 
  Country: None (occurrence: None)
  Receive Date: 20110110
  Receipt Date: 20101008
  Transmission Date: 20110831
  Serious: No
  Sender: FDA-Public Use
  Company Number: 2010IP000129

PATIENT
  Age: 78 Year
  Sex: Male

DRUGS (6)
  1. FELDENE [Concomitant]
  2. AZOPT [Concomitant]
  3. THYROID TAB [Concomitant]
  4. BEPREVE [Suspect]
     Indication: BLEPHARITIS
     Dosage: 1 GTT; BID; OPH
     Route: 047
     Dates: start: 20100901, end: 20100901
  5. LUMIGAN [Concomitant]
  6. LISINOPRIL [Concomitant]

REACTIONS (1)
  - DIPLOPIA [None]
